FAERS Safety Report 8386572-3 (Version None)
Quarter: 2012Q2

REPORT INFORMATION
  Report Type: 
  Country: None (occurrence: None)
  Receive Date: 20120525
  Receipt Date: 20110908
  Transmission Date: 20120825
  Serious: No
  Sender: FDA-Public Use
  Company Number: US-GLAXOSMITHKLINE-A0943896A

PATIENT
  Sex: Female

DRUGS (3)
  1. ASTELIN [Concomitant]
  2. NASONEX [Concomitant]
  3. VERAMYST [Suspect]
     Indication: RHINITIS ALLERGIC
     Dosage: 4PUFF TWICE PER DAY
     Route: 045
     Dates: start: 20090916

REACTIONS (2)
  - VISION BLURRED [None]
  - INCORRECT DOSE ADMINISTERED [None]
